FAERS Safety Report 8847369 (Version 2)
Quarter: 2013Q2

REPORT INFORMATION
  Report Type: Spontaneous
  Country: JP (occurrence: JP)
  Receive Date: 20121018
  Receipt Date: 20130425
  Transmission Date: 20140414
  Serious: Yes (Hospitalization)
  Sender: FDA-Public Use
  Company Number: PHHY2012JP089295

PATIENT
  Age: 46 Year
  Sex: Female

DRUGS (5)
  1. BROMAZEPAM [Suspect]
     Dosage: 50 MG, UNK
  2. MIRTAZAPINE [Interacting]
     Dosage: 50 MG, UNK
  3. PAROXETINE [Interacting]
     Dosage: 250 MG, UNK
  4. NORTRIPTYLINE [Interacting]
     Dosage: 3750 MG, UNK
  5. ESTAZOLAM [Suspect]
     Dosage: 375 MG, UNK

REACTIONS (10)
  - Bundle branch block left [Recovered/Resolved]
  - Arrhythmia [Recovered/Resolved]
  - Electrocardiogram QRS complex prolonged [Unknown]
  - Electrocardiogram QT prolonged [Recovered/Resolved]
  - Heart rate increased [Recovered/Resolved]
  - Convulsion [Recovered/Resolved]
  - Blood pressure decreased [Recovered/Resolved]
  - Coma scale abnormal [Recovered/Resolved]
  - Drug level increased [Recovered/Resolved]
  - Overdose [Recovered/Resolved]
